FAERS Safety Report 8054659 (Version 5)
Quarter: 2012Q4

REPORT INFORMATION
  Report Type: Report from Study
  Country: DE (occurrence: DE)
  Receive Date: 20110726
  Receipt Date: 20121122
  Transmission Date: 20130627
  Serious: Yes (Hospitalization)
  Sender: FDA-Public Use
  Company Number: DE-ROCHE-778233

PATIENT
  Age: 58 Year
  Sex: Male
  Weight: 94 kg

DRUGS (2)
  1. CAPECITABINE [Suspect]
     Indication: COLORECTAL CANCER
     Dosage: DOSE:825MG/M2BID D1-33 W/O WEEKENDS+OPTIONAL BOOST,DOSE PRIOR TO SAE:7MAR2011,ACTUAL DOSE:3000MG/DAY
     Route: 048
  2. OXALIPLATIN [Suspect]
     Indication: COLORECTAL CANCER
     Dosage: DOSE: 50MG/M2 ON DAY 1, 8, 15, 22 AND 29, THERAPY DELAYED, LAST DOSE PRIOR TO SAE: 7 MAR 2011
     Route: 042

REACTIONS (2)
  - Anal abscess [Recovered/Resolved with Sequelae]
  - Wound dehiscence [Recovered/Resolved with Sequelae]
